FAERS Safety Report 16504998 (Version 2)
Quarter: 2019Q3

REPORT INFORMATION
  Report Type: Spontaneous
  Country: US (occurrence: US)
  Receive Date: 20190701
  Receipt Date: 20190701
  Transmission Date: 20191004
  Serious: No
  Sender: FDA-Public Use
  Company Number: US-GALDERMA-US19010276

PATIENT

DRUGS (1)
  1. DIFFERIN [Suspect]
     Active Substance: ADAPALENE
     Indication: ACNE
     Route: 061
     Dates: start: 201902

REACTIONS (3)
  - Skin exfoliation [Unknown]
  - Skin burning sensation [Unknown]
  - Skin fragility [Unknown]

NARRATIVE: CASE EVENT DATE: 201902
